FAERS Safety Report 5304928-X (Version None)
Quarter: 2007Q2

REPORT INFORMATION
  Report Type: 
  Country: None (occurrence: None)
  Receive Date: 20070423
  Receipt Date: 20070413
  Transmission Date: 20071010
  Serious: Yes (Other)
  Sender: FDA-Public Use
  Company Number: BR-SHR-BR-2007-013719

PATIENT
  Age: 47 Year
  Sex: Female

DRUGS (1)
  1. MIRENA [Suspect]
     Indication: ENDOMETRIOSIS
     Dosage: 20 A?G/DAY, CONT
     Route: 015
     Dates: start: 20060526

REACTIONS (5)
  - BLOOD CHOLESTEROL INCREASED [None]
  - HEMIPLEGIA [None]
  - HYPERTENSION [None]
  - MULTIPLE SCLEROSIS [None]
  - WEIGHT INCREASED [None]
